FAERS Safety Report 10881670 (Version 2)
Quarter: 2015Q3

REPORT INFORMATION
  Report Type: Report from Study
  Country: US (occurrence: US)
  Receive Date: 20150303
  Receipt Date: 20150831
  Transmission Date: 20151125
  Serious: Yes (Death, Other)
  Sender: FDA-Public Use
  Company Number: US-ASTELLAS-2015US006370

PATIENT
  Sex: Female

DRUGS (9)
  1. ADRIAMYCIN [Concomitant]
     Active Substance: DOXORUBICIN HYDROCHLORIDE
     Indication: PRODUCT USED FOR UNKNOWN INDICATION
     Route: 065
  2. ERLOTINIB [Suspect]
     Active Substance: ERLOTINIB
     Indication: PANCREATIC CARCINOMA
     Route: 048
  3. MITOMYCIN. [Concomitant]
     Active Substance: MITOMYCIN
     Indication: PRODUCT USED FOR UNKNOWN INDICATION
     Route: 065
  4. ARANESP [Concomitant]
     Active Substance: DARBEPOETIN ALFA
     Indication: PRODUCT USED FOR UNKNOWN INDICATION
     Route: 042
  5. AVASTIN [Suspect]
     Active Substance: BEVACIZUMAB
     Route: 065
  6. XELODA [Suspect]
     Active Substance: CAPECITABINE
     Indication: PRODUCT USED FOR UNKNOWN INDICATION
     Dosage: UNK UNK, UNKNOWN FREQ.
     Route: 042
  7. AVASTIN [Suspect]
     Active Substance: BEVACIZUMAB
     Indication: BREAST CANCER
     Route: 065
  8. AVASTIN [Suspect]
     Active Substance: BEVACIZUMAB
     Indication: PANCREATIC CARCINOMA
     Route: 065
  9. TYLENOL [Concomitant]
     Active Substance: ACETAMINOPHEN
     Indication: PRODUCT USED FOR UNKNOWN INDICATION
     Dosage: UNK UNK, UNKNOWN FREQ.
     Route: 065

REACTIONS (20)
  - Hypoaesthesia [Unknown]
  - Fatigue [Unknown]
  - Death [Fatal]
  - Anxiety [Unknown]
  - Neuropathy peripheral [Unknown]
  - Decreased appetite [Unknown]
  - Back pain [Unknown]
  - Insomnia [Unknown]
  - Vomiting [Unknown]
  - Diarrhoea [Unknown]
  - Neoplasm progression [Unknown]
  - Pain [Unknown]
  - Asthenia [Unknown]
  - Erythema [Unknown]
  - Weight decreased [Unknown]
  - Abdominal pain upper [Unknown]
  - Nausea [Unknown]
  - Dyspnoea [Unknown]
  - Rash [Unknown]
  - Off label use [Unknown]
